FAERS Safety Report 17618899 (Version 2)
Quarter: 2022Q2

REPORT INFORMATION
  Report Type: Spontaneous
  Country: FR (occurrence: FR)
  Receive Date: 20200402
  Receipt Date: 20220408
  Transmission Date: 20220721
  Serious: Yes (Life-Threatening, Hospitalization)
  Sender: FDA-Public Use
  Company Number: None

PATIENT
  Age: 63 Year
  Sex: Male
  Weight: 80 kg

DRUGS (3)
  1. CUBICIN [Suspect]
     Active Substance: DAPTOMYCIN
     Indication: Infection
     Dosage: 800 MILLIGRAM
     Route: 042
     Dates: start: 20200227, end: 20200301
  2. CLAFORAN [Suspect]
     Active Substance: CEFOTAXIME SODIUM
     Dosage: 6 GRAM (IM/IV)
     Route: 042
     Dates: start: 20200227, end: 20200301
  3. DIGOXIN [Suspect]
     Active Substance: DIGOXIN
     Indication: Cardiac failure
     Dosage: 0.25 MILLIGRAM
     Route: 048
     Dates: start: 20200227, end: 20200301

REACTIONS (3)
  - Cardio-respiratory arrest [Recovered/Resolved]
  - Rhabdomyolysis [Recovered/Resolved]
  - Liver disorder [Recovered/Resolved]

NARRATIVE: CASE EVENT DATE: 20200228
